FAERS Safety Report 13113315 (Version 3)
Quarter: 2017Q1

REPORT INFORMATION
  Report Type: Spontaneous
  Country: CZ (occurrence: CZ)
  Receive Date: 20170113
  Receipt Date: 20170120
  Transmission Date: 20170428
  Serious: Yes (Life-Threatening, Hospitalization, Other)
  Sender: FDA-Public Use
  Company Number: CZ-PFIZER INC-2017008995

PATIENT
  Age: 70 Year
  Sex: Female

DRUGS (3)
  1. DITHIADEN [Concomitant]
     Active Substance: BISULEPIN
     Indication: PREMEDICATION
     Dosage: 1 MG, UNK
     Route: 042
     Dates: start: 20170104
  2. TORISEL [Suspect]
     Active Substance: TEMSIROLIMUS
     Dosage: 30 UNK, UNK
     Route: 042
     Dates: start: 20170112, end: 20170112
  3. TORISEL [Suspect]
     Active Substance: TEMSIROLIMUS
     Indication: RENAL CANCER
     Dosage: 30 MG, UNK
     Route: 042
     Dates: start: 20170104, end: 20170104

REACTIONS (10)
  - Tremor [Recovered/Resolved]
  - Bronchospasm [Recovered/Resolved]
  - Erythema [Recovered/Resolved]
  - Oxygen saturation decreased [Recovered/Resolved]
  - Oxygen saturation decreased [Recovered/Resolved]
  - Erythema [Recovered/Resolved]
  - Hypersensitivity [Recovered/Resolved]
  - Dyspnoea [Recovered/Resolved]
  - Altered state of consciousness [Recovered/Resolved]
  - Hypertension [Recovered/Resolved]

NARRATIVE: CASE EVENT DATE: 20170104
